FAERS Safety Report 6592953-0 (Version None)
Quarter: 2010Q1

REPORT INFORMATION
  Report Type: 
  Country: None (occurrence: None)
  Receive Date: 20100222
  Receipt Date: 20100211
  Transmission Date: 20100710
  Serious: Yes (Hospitalization)
  Sender: FDA-Public Use
  Company Number: US-ELI_LILLY_AND_COMPANY-US201002003634

PATIENT
  Sex: Female

DRUGS (3)
  1. HUMALOG MIX 75/25 [Suspect]
     Dosage: UNK, UNK
  2. HUMALOG [Suspect]
     Indication: DIABETES MELLITUS
     Dosage: UNK, AS NEEDED
     Dates: start: 20000101
  3. LANTUS [Concomitant]

REACTIONS (10)
  - ABASIA [None]
  - BACK DISORDER [None]
  - BACK PAIN [None]
  - DRUG DISPENSING ERROR [None]
  - FEELING ABNORMAL [None]
  - FEMUR FRACTURE [None]
  - GAIT DISTURBANCE [None]
  - HOSPITALISATION [None]
  - JOINT INJURY [None]
  - JOINT SWELLING [None]
